FAERS Safety Report 5573023-7 (Version None)
Quarter: 2007Q4

REPORT INFORMATION
  Report Type: 
  Country: None (occurrence: None)
  Receive Date: 20071214
  Receipt Date: 20071203
  Transmission Date: 20080405
  Serious: Yes (Hospitalization, Other)
  Sender: FDA-Public Use
  Company Number: THYM-11602

PATIENT
  Age: 16 Year
  Sex: Male

DRUGS (3)
  1. THYMOGLOBULIN [Suspect]
     Indication: APLASTIC ANAEMIA
  2. CYCLOSPORINE [Concomitant]
  3. CORTICOSTEROIDS [Concomitant]

REACTIONS (1)
  - ANAPHYLACTIC SHOCK [None]
